FAERS Safety Report 9380440 (Version 3)
Quarter: 2013Q3

REPORT INFORMATION
  Report Type: Spontaneous
  Country: NZ (occurrence: NZ)
  Receive Date: 20130702
  Receipt Date: 20130827
  Transmission Date: 20140515
  Serious: Yes (Hospitalization)
  Sender: FDA-Public Use
  Company Number: NZ-ABBOTT-13P-118-1071386-00

PATIENT
  Age: 28 Year
  Sex: Female
  Weight: 63 kg

DRUGS (4)
  1. HUMIRA [Suspect]
     Indication: CROHN^S DISEASE
     Route: 058
     Dates: end: 20120819
  2. HUMIRA [Suspect]
     Route: 058
     Dates: start: 20120819, end: 20121102
  3. HUMIRA [Suspect]
     Dates: start: 20121102
  4. METHOTREXATE [Concomitant]
     Indication: PRODUCT USED FOR UNKNOWN INDICATION
     Route: 048

REACTIONS (3)
  - Faecal calprotectin increased [Recovered/Resolved]
  - Crohn^s disease [Recovered/Resolved]
  - Drug effect decreased [Unknown]
